FAERS Safety Report 5339217-0 (Version None)
Quarter: 2007Q2

REPORT INFORMATION
  Report Type: 
  Country: None (occurrence: None)
  Receive Date: 20070530
  Receipt Date: 20070522
  Transmission Date: 20071010
  Serious: Yes (Hospitalization, Other)
  Sender: FDA-Public Use
  Company Number: US-GENENTECH-241848

PATIENT
  Sex: Female
  Weight: 78.912 kg

DRUGS (10)
  1. RITUXAN [Suspect]
     Indication: NON-HODGKIN'S LYMPHOMA
     Dates: start: 20040501
  2. FLUDARABINE PHOSPHATE [Suspect]
     Indication: NON-HODGKIN'S LYMPHOMA
     Dates: start: 20040501
  3. MITOXANTRONE [Suspect]
     Indication: NON-HODGKIN'S LYMPHOMA
     Dosage: UNK, UNK
     Dates: start: 20040501
  4. TOSITUMOMAB [Suspect]
     Indication: NON-HODGKIN'S LYMPHOMA
     Dosage: 450 MG, SINGLE
     Route: 042
     Dates: start: 20010711, end: 20010711
  5. TOSITUMOMAB [Suspect]
     Dosage: 5 MCI, SINGLE
     Route: 042
     Dates: start: 20010711, end: 20010711
  6. RADIOIODINE-131 [Suspect]
     Indication: NON-HODGKIN'S LYMPHOMA
  7. LEVOTHYROXINE SODIUM [Concomitant]
     Indication: DRUG USE FOR UNKNOWN INDICATION
  8. ZOLPIDEM TARTRATE [Concomitant]
     Indication: DRUG USE FOR UNKNOWN INDICATION
  9. PARACETAMOL [Concomitant]
     Indication: DRUG USE FOR UNKNOWN INDICATION
  10. LORAZEPAM [Concomitant]
     Indication: DRUG USE FOR UNKNOWN INDICATION

REACTIONS (2)
  - MYELODYSPLASTIC SYNDROME [None]
  - TUMOUR LYSIS SYNDROME [None]
